FAERS Safety Report 16997798 (Version 2)
Quarter: 2019Q4

REPORT INFORMATION
  Report Type: Report from Study
  Country: AR (occurrence: AR)
  Receive Date: 20191106
  Receipt Date: 20191217
  Transmission Date: 20200122
  Serious: Yes (Hospitalization, Other)
  Sender: FDA-Public Use
  Company Number: AR-BRISTOL-MYERS SQUIBB COMPANY-BMS-2019-106158

PATIENT
  Age: 67 Year
  Sex: Female

DRUGS (1)
  1. APIXABAN [Suspect]
     Active Substance: APIXABAN
     Indication: PRODUCT USED FOR UNKNOWN INDICATION
     Dosage: 5 MILLIGRAM
     Route: 065
     Dates: start: 20160801

REACTIONS (5)
  - Abscess [Recovered/Resolved]
  - Diverticulitis [Recovered/Resolved]
  - Wrong technique in product usage process [Unknown]
  - Stress [Unknown]
  - Phlebitis [Unknown]

NARRATIVE: CASE EVENT DATE: 20191019
